FAERS Safety Report 6101135-8 (Version None)
Quarter: 2009Q1

REPORT INFORMATION
  Report Type: 
  Country: None (occurrence: None)
  Receive Date: 20090304
  Receipt Date: 20090223
  Transmission Date: 20090719
  Serious: Yes (Other)
  Sender: FDA-Public Use
  Company Number: GB-BAYER-200831205GPV

PATIENT
  Sex: Female

DRUGS (2)
  1. CAMPATH [Suspect]
     Indication: CHRONIC INFLAMMATORY DEMYELINATING POLYRADICULONEUROPATHY
     Route: 065
     Dates: start: 20031001, end: 20031001
  2. CAMPATH [Suspect]
     Route: 065
     Dates: start: 20050601, end: 20050601

REACTIONS (1)
  - HYPERTHYROIDISM [None]
